FAERS Safety Report 8601277-9 (Version None)
Quarter: 2012Q3

REPORT INFORMATION
  Report Type: 
  Country: None (occurrence: None)
  Receive Date: 20120817
  Receipt Date: 20120813
  Transmission Date: 20120928
  Serious: Yes (Disabling)
  Sender: FDA-Public Use
  Company Number: MX-ABBOTT-12P-107-0964787-00

PATIENT
  Sex: Male
  Weight: 49 kg

DRUGS (6)
  1. ALLOPURINOL [Concomitant]
     Indication: BLOOD URIC ACID
     Route: 048
     Dates: start: 20120201
  2. TRAMADOL HCL [Concomitant]
     Indication: PAIN
     Route: 048
     Dates: start: 20120201
  3. HUMIRA [Suspect]
     Indication: ANKYLOSING SPONDYLITIS
     Route: 058
     Dates: start: 20100427, end: 20100622
  4. HUMIRA [Suspect]
     Route: 058
     Dates: start: 20120529
  5. ASULFIDINE [Concomitant]
     Indication: PAIN
     Route: 048
     Dates: start: 20110105
  6. ACETAMINOPHEN [Concomitant]
     Indication: PAIN
     Route: 048
     Dates: start: 20120201

REACTIONS (4)
  - CHONDROPATHY [None]
  - GAIT DISTURBANCE [None]
  - WEIGHT DECREASED [None]
  - PAIN [None]
